FAERS Safety Report 5031620-1 (Version None)
Quarter: 2006Q2

REPORT INFORMATION
  Report Type: 
  Country: None (occurrence: None)
  Receive Date: 20060621
  Receipt Date: 20051118
  Transmission Date: 20061013
  Serious: Yes (Other)
  Sender: FDA-Public Use
  Company Number: PHEH2005US12776

PATIENT

DRUGS (3)
  1. METHYLDOPA [Concomitant]
     Dosage: UNK, TID
     Route: 048
     Dates: start: 20050817
  2. METHYLDOPA [Concomitant]
     Dosage: UNK, TID
     Route: 048
     Dates: start: 20050817
  3. LOTREL [Suspect]
     Dosage: UNK, UNK
     Route: 064
     Dates: end: 20050801

REACTIONS (3)
  - CONGENITAL CHOROID PLEXUS CYST [None]
  - DRUG EXPOSURE DURING PREGNANCY [None]
  - PREMATURE BABY [None]
